FAERS Safety Report 24944607 (Version 3)
Quarter: 2025Q2

REPORT INFORMATION
  Report Type: Report from Study
  Country: US (occurrence: US)
  Receive Date: 20250208
  Receipt Date: 20250601
  Transmission Date: 20250717
  Serious: Yes (Other)
  Sender: ABBVIE
  Company Number: US-ABBVIE-6074116

PATIENT
  Age: 69 Year
  Sex: Female

DRUGS (2)
  1. SKYRIZI [Suspect]
     Active Substance: RISANKIZUMAB-RZAA
     Indication: Psoriasis
     Route: 058
     Dates: start: 20240201
  2. SKYRIZI [Suspect]
     Active Substance: RISANKIZUMAB-RZAA
     Route: 058
     Dates: start: 20231109

REACTIONS (5)
  - Knee arthroplasty [Recovered/Resolved]
  - COVID-19 [Recovering/Resolving]
  - Brain fog [Not Recovered/Not Resolved]
  - Therapeutic product effect decreased [Unknown]
  - Rash [Unknown]

NARRATIVE: CASE EVENT DATE: 20241201
